FAERS Safety Report 8144497-2 (Version None)
Quarter: 2012Q1

REPORT INFORMATION
  Report Type: 
  Country: None (occurrence: None)
  Receive Date: 20120217
  Receipt Date: 20120216
  Transmission Date: 20120608
  Serious: No
  Sender: FDA-Public Use
  Company Number: US-TEVA-322963USA

PATIENT
  Sex: Female

DRUGS (4)
  1. CARBIDOPA AND LEVODOPA [Concomitant]
  2. AZILECT [Suspect]
     Indication: PARKINSON'S DISEASE
     Dosage: 1 MILLIGRAM;
     Route: 048
  3. UNSEPCIFIED BLOOD PRESSURE MED [Concomitant]
  4. ROPINIROLE [Concomitant]

REACTIONS (2)
  - ARTHRALGIA [None]
  - WEIGHT BEARING DIFFICULTY [None]
